FAERS Safety Report 4527174-6 (Version None)
Quarter: 2004Q4

REPORT INFORMATION
  Report Type: 
  Country: None (occurrence: None)
  Receive Date: 20041213
  Receipt Date: 20040922
  Transmission Date: 20050328
  Serious: Yes (Hospitalization)
  Sender: FDA-Public Use
  Company Number: 800134

PATIENT
  Sex: Female

DRUGS (3)
  1. EXTRANEAL [Suspect]
     Indication: PERITONEAL DIALYSIS
     Dosage: 2 L; QD; INTRAPERITONEAL
     Route: 033
  2. DIANEAL [Suspect]
     Indication: PERITONEAL DIALYSIS
     Dosage: 6 L; QD; INTRAPERITONEAL
     Route: 033
  3. HOMECHOICE [Concomitant]

REACTIONS (7)
  - ACUTE PULMONARY OEDEMA [None]
  - DIARRHOEA [None]
  - DYSPNOEA [None]
  - KLEBSIELLA INFECTION [None]
  - PERITONITIS [None]
  - PHARMACEUTICAL PRODUCT COMPLAINT [None]
  - VAGINAL MYCOSIS [None]
